FAERS Safety Report 7673633-7 (Version None)
Quarter: 2011Q3

REPORT INFORMATION
  Report Type: 
  Country: None (occurrence: None)
  Receive Date: 20110810
  Receipt Date: 20110803
  Transmission Date: 20111222
  Serious: Yes (Other)
  Sender: FDA-Public Use
  Company Number: PHEH2011US00640

PATIENT
  Sex: Female

DRUGS (3)
  1. RECLAST [Suspect]
     Indication: OSTEOPOROSIS
     Dosage: UNK
     Route: 042
  2. BONIVA [Suspect]
     Indication: OSTEOPOROSIS
  3. FOSAMAX [Suspect]
     Indication: OSTEOPOROSIS

REACTIONS (8)
  - OSTEOGENESIS IMPERFECTA [None]
  - ANXIETY [None]
  - PAIN [None]
  - FEMUR FRACTURE [None]
  - EMOTIONAL DISTRESS [None]
  - FEELING ABNORMAL [None]
  - STRESS FRACTURE [None]
  - INJURY [None]
